FAERS Safety Report 17910939 (Version 1)
Quarter: 2020Q2

REPORT INFORMATION
  Report Type: Spontaneous
  Country: US (occurrence: US)
  Receive Date: 20200617
  Receipt Date: 20200617
  Transmission Date: 20200714
  Serious: Yes (Hospitalization)
  Sender: FDA-Public Use
  Company Number: None

PATIENT
  Age: 48 Year
  Sex: Female

DRUGS (23)
  1. BIOTIN [Concomitant]
     Active Substance: BIOTIN
  2. BUPROPION. [Concomitant]
     Active Substance: BUPROPION
  3. MAXALT [Concomitant]
     Active Substance: RIZATRIPTAN BENZOATE
  4. SYNTHROID [Concomitant]
     Active Substance: LEVOTHYROXINE SODIUM
  5. ASPIRIN. [Concomitant]
     Active Substance: ASPIRIN
  6. FLUCONAZOLE. [Concomitant]
     Active Substance: FLUCONAZOLE
  7. MAGNESIUM [Concomitant]
     Active Substance: MAGNESIUM
  8. MONTELUKAST [Concomitant]
     Active Substance: MONTELUKAST SODIUM
  9. TRAMADOL HCL [Concomitant]
     Active Substance: TRAMADOL HYDROCHLORIDE
  10. ARIPIPRAZOLE. [Concomitant]
     Active Substance: ARIPIPRAZOLE
  11. ESTRADIOL. [Concomitant]
     Active Substance: ESTRADIOL
  12. RESTASIS MUL EMU [Concomitant]
  13. ORENCIA [Suspect]
     Active Substance: ABATACEPT
     Indication: RHEUMATOID ARTHRITIS
     Dosage: ?          OTHER DOSE:1 PEN;?
     Route: 058
     Dates: start: 20161029
  14. CLONAZEPAM. [Concomitant]
     Active Substance: CLONAZEPAM
  15. DULOXETINE. [Concomitant]
     Active Substance: DULOXETINE
  16. FOLIC ACID. [Concomitant]
     Active Substance: FOLIC ACID
  17. METHYLPRED [Concomitant]
     Active Substance: METHYLPREDNISOLONE
  18. METHOTREXATE. [Concomitant]
     Active Substance: METHOTREXATE
  19. ZOLPIDEM [Concomitant]
     Active Substance: ZOLPIDEM TARTRATE
  20. TROKENDI XR [Concomitant]
     Active Substance: TOPIRAMATE
  21. ALPRAZOLAM. [Concomitant]
     Active Substance: ALPRAZOLAM
  22. CENTRUM SILVER [Concomitant]
     Active Substance: MINERALS\VITAMINS
  23. TROKENDI XR [Suspect]
     Active Substance: TOPIRAMATE

REACTIONS (1)
  - Appendicectomy [None]

NARRATIVE: CASE EVENT DATE: 20190603
